FAERS Safety Report 7648663-1 (Version None)
Quarter: 2011Q3

REPORT INFORMATION
  Report Type: 
  Country: None (occurrence: None)
  Receive Date: 20110801
  Receipt Date: 20110729
  Transmission Date: 20111222
  Serious: No
  Sender: FDA-Public Use
  Company Number: US-PFIZER INC-2011173514

PATIENT
  Sex: Male
  Weight: 104 kg

DRUGS (2)
  1. LIPITOR [Suspect]
     Indication: BLOOD CHOLESTEROL INCREASED
     Dosage: 20 MG, 1X/DAY
     Route: 048
     Dates: start: 20070101
  2. LIPITOR [Suspect]
     Dosage: 20 MG, DAILY
     Route: 048

REACTIONS (1)
  - PRURITUS GENERALISED [None]
